FAERS Safety Report 16875945 (Version 1)
Quarter: 2019Q4

REPORT INFORMATION
  Report Type: Spontaneous
  Country: US (occurrence: US)
  Receive Date: 20191002
  Receipt Date: 20191002
  Transmission Date: 20200122
  Serious: No
  Sender: FDA-Public Use
  Company Number: US-GW PHARMA-201907USGW2344

PATIENT

DRUGS (11)
  1. LORAZEPAM. [Concomitant]
     Active Substance: LORAZEPAM
     Indication: SEIZURE PROPHYLAXIS
     Dosage: 1 MILLIGRAM, PRN
     Route: 065
  2. DIACOMIT [Concomitant]
     Active Substance: STIRIPENTOL
     Indication: SEVERE MYOCLONIC EPILEPSY OF INFANCY
  3. LEVOCARNITINE. [Concomitant]
     Active Substance: LEVOCARNITINE
     Indication: AMMONIA ABNORMAL
     Dosage: 660 MILLIGRAM, TID
     Route: 065
  4. EPIDIOLEX [Suspect]
     Active Substance: CANNABIDIOL
     Indication: EPILEPSY
     Dosage: 19.84 MG/KG/DAY, 630 MILLIGRAM, BID
     Route: 048
     Dates: start: 20190322
  5. DIACOMIT [Concomitant]
     Active Substance: STIRIPENTOL
     Indication: EPILEPSY
     Dosage: 1000 MILLIGRAM, BID
     Route: 065
  6. DEPAKOTE [Concomitant]
     Active Substance: DIVALPROEX SODIUM
     Indication: EPILEPSY
     Dosage: 125 MILLIGRAM, BID (1 CAPSULE)
     Route: 065
  7. DEPAKOTE [Concomitant]
     Active Substance: DIVALPROEX SODIUM
     Indication: SEVERE MYOCLONIC EPILEPSY OF INFANCY
  8. FELBAMATE. [Concomitant]
     Active Substance: FELBAMATE
     Indication: SEVERE MYOCLONIC EPILEPSY OF INFANCY
     Dosage: 2600 MILLIGRAM, QD (800MG, 1000MG, 800 MG DAILY)
     Route: 065
  9. FELBAMATE. [Concomitant]
     Active Substance: FELBAMATE
     Indication: EPILEPSY
  10. ONFI [Concomitant]
     Active Substance: CLOBAZAM
     Indication: EPILEPSY
     Dosage: 40 MILLIGRAM, TID (15MG AM, 10 MG AFTERNOON, 15 MG PM)
     Route: 065
  11. ONFI [Concomitant]
     Active Substance: CLOBAZAM
     Indication: SEVERE MYOCLONIC EPILEPSY OF INFANCY

REACTIONS (1)
  - Lacrimation increased [Unknown]

NARRATIVE: CASE EVENT DATE: 20190416
